FAERS Safety Report 6948705-2 (Version None)
Quarter: 2010Q3

REPORT INFORMATION
  Report Type: 
  Country: None (occurrence: None)
  Receive Date: 20100828
  Receipt Date: 20091106
  Transmission Date: 20110219
  Serious: No
  Sender: FDA-Public Use
  Company Number: US-ABBOTT-09P-163-0607781-00

PATIENT
  Sex: Female
  Weight: 70.37 kg

DRUGS (20)
  1. NIASPAN [Suspect]
     Indication: BLOOD CHOLESTEROL INCREASED
     Route: 048
     Dates: start: 20091102, end: 20091109
  2. BENADRYL [Concomitant]
     Indication: PROPHYLAXIS
     Route: 048
  3. METHOTREXATE [Concomitant]
     Indication: RHEUMATOID ARTHRITIS
     Route: 048
  4. METHOTREXATE [Concomitant]
     Indication: OSTEOARTHRITIS
  5. INDERAL [Concomitant]
     Indication: HEART RATE IRREGULAR
     Route: 048
  6. INDERAL [Concomitant]
     Indication: MITRAL VALVE PROLAPSE
  7. LORAZEPAM [Concomitant]
     Indication: TIC
     Route: 048
  8. FOLIC ACID [Concomitant]
     Indication: VITAMIN SUPPLEMENTATION
     Route: 048
  9. NEXIUM [Concomitant]
     Indication: DYSPEPSIA
     Route: 048
  10. ACTONEL [Concomitant]
     Indication: OSTEOPOROSIS
     Route: 048
     Dates: start: 20090801
  11. ACTONEL [Concomitant]
     Route: 048
  12. SPIRIVA [Concomitant]
     Indication: LUNG NEOPLASM
     Route: 055
     Dates: start: 20070101
  13. VICODIN [Concomitant]
     Indication: BACK PAIN
     Dosage: 750/5
     Route: 048
  14. CALTRATE + D [Concomitant]
     Indication: MINERAL SUPPLEMENTATION
     Route: 048
  15. RESTORIL [Concomitant]
     Indication: SLEEP DISORDER
     Route: 048
  16. RESTORIL [Concomitant]
     Indication: BACK PAIN
  17. COQ10 [Concomitant]
     Indication: VITAMIN SUPPLEMENTATION
     Route: 048
  18. CENTRUM SILVER [Concomitant]
     Indication: VITAMIN SUPPLEMENTATION
     Route: 048
  19. LOMOTIL [Concomitant]
     Indication: DIARRHOEA
     Route: 048
     Dates: start: 20090722, end: 20091001
  20. FIBER CAPSULES [Concomitant]
     Indication: MEDICAL DIET
     Route: 048
     Dates: start: 20090701

REACTIONS (1)
  - DIARRHOEA [None]
